FAERS Safety Report 4700938-1 (Version None)
Quarter: 2005Q2

REPORT INFORMATION
  Report Type: 
  Country: None (occurrence: None)
  Receive Date: 20050628
  Receipt Date: 20050513
  Transmission Date: 20051028
  Serious: Yes (Hospitalization, Other)
  Sender: FDA-Public Use
  Company Number: FR-NOVOPROD-244376

PATIENT
  Age: 42 Year
  Sex: Male
  Weight: 139 kg

DRUGS (8)
  1. NORDITROPIN SIMPLEXX [Suspect]
     Indication: GROWTH HORMONE DEFICIENCY
     Dosage: .3 MG, QD
     Route: 058
     Dates: start: 20030523
  2. HYDROCORTISON [Concomitant]
     Dosage: 30 MG, QD
     Dates: start: 20011201
  3. LEVOTHYROX [Concomitant]
     Dosage: 175 UG, QD
     Dates: start: 20011201
  4. MINIRIN ^AVENTIS PHARMA^ [Concomitant]
     Dosage: 2 PUFFS
     Dates: start: 20011201
  5. ANDROTARDYL [Concomitant]
     Dosage: 250 MG, QD
     Dates: start: 20011201
  6. SKENAN [Concomitant]
     Dosage: 20 MG, QD
     Route: 048
     Dates: start: 20030101, end: 20040801
  7. VIOXX [Concomitant]
     Dosage: 12.5 MG, QD
     Dates: start: 20020701, end: 20040501
  8. ACTISKENAN [Concomitant]
     Dosage: P.N.
     Dates: start: 20030101, end: 20040801

REACTIONS (1)
  - PROSTHESIS IMPLANTATION [None]
